FAERS Safety Report 8493170-X (Version None)
Quarter: 2012Q2

REPORT INFORMATION
  Report Type: 
  Country: None (occurrence: None)
  Receive Date: 20120627
  Receipt Date: 20120615
  Transmission Date: 20120825
  Serious: Yes (Other)
  Sender: FDA-Public Use
  Company Number: DSA_58003_2012

PATIENT

DRUGS (3)
  1. LEUCOVORIN CALCIUM [Suspect]
     Indication: METASTASES TO LIVER
     Dosage: (20 MG/M2 DAILY INTRAVENOUS BOLUS)
     Route: 040
  2. FLUOROURACIL [Suspect]
     Indication: METASTASES TO LIVER
     Dosage: (425 MG/M2 DAILY INTRAVENOUS (NOT OTHERWISE SPECIFIED))
     Route: 042
  3. FLOXURIDINE [Suspect]
     Indication: METASTASES TO LIVER
     Dosage: (0.2 MG/KG DAILY)

REACTIONS (1)
  - LETHARGY [None]
